FAERS Safety Report 9812137 (Version 1)
Quarter: 2014Q1

REPORT INFORMATION
  Report Type: Report from Study
  Country: US (occurrence: US)
  Receive Date: 20140111
  Receipt Date: 20140111
  Transmission Date: 20141002
  Serious: Yes (Death)
  Sender: FDA-Public Use
  Company Number: US-ROCHE-1331256

PATIENT
  Sex: Female
  Weight: 92.62 kg

DRUGS (7)
  1. AVASTIN [Suspect]
     Indication: BREAST CANCER FEMALE
     Route: 042
     Dates: start: 20110110
  2. GEMZAR [Suspect]
     Indication: BREAST CANCER FEMALE
     Route: 042
     Dates: start: 20110110
  3. ALOXI [Concomitant]
     Route: 042
  4. ATIVAN [Concomitant]
     Route: 042
  5. BENADRYL (UNITED STATES) [Concomitant]
     Route: 042
  6. CIPRO [Concomitant]
  7. NEURONTIN (UNITED STATES) [Concomitant]

REACTIONS (11)
  - Death [Fatal]
  - Pain in extremity [Unknown]
  - Myalgia [Unknown]
  - Headache [Unknown]
  - Balance disorder [Unknown]
  - Sinus congestion [Unknown]
  - Nausea [Unknown]
  - Dysuria [Unknown]
  - Dizziness [Unknown]
  - Blood pressure increased [Unknown]
  - Neuropathy peripheral [Unknown]
